FAERS Safety Report 23329318 (Version 1)
Quarter: 2023Q4

REPORT INFORMATION
  Report Type: Spontaneous
  Country: US (occurrence: US)
  Receive Date: 20231222
  Receipt Date: 20231222
  Transmission Date: 20240110
  Serious: No
  Sender: FDA-Public Use
  Company Number: US-LEO Pharma-366128

PATIENT
  Age: 56 Year
  Sex: Female

DRUGS (1)
  1. ADBRY [Suspect]
     Active Substance: TRALOKINUMAB-LDRM
     Indication: Dermatitis atopic
     Route: 058
     Dates: start: 20230331

REACTIONS (4)
  - Dermatitis atopic [Unknown]
  - Pruritus [Unknown]
  - Sleep disorder [Unknown]
  - Erythema [Unknown]

NARRATIVE: CASE EVENT DATE: 20231211
